FAERS Safety Report 8388806-8 (Version None)
Quarter: 2012Q2

REPORT INFORMATION
  Report Type: 
  Country: None (occurrence: None)
  Receive Date: 20120528
  Receipt Date: 20120514
  Transmission Date: 20120825
  Serious: Yes (Death, Other)
  Sender: FDA-Public Use
  Company Number: IT-RANBAXY-2012RR-52394

PATIENT
  Age: 47 Year
  Sex: Female

DRUGS (9)
  1. SERTRALINE HYDROCHLORIDE [Suspect]
     Dosage: 200 MG/DAY
     Route: 065
  2. BIPERIDEN HYDROCHLORIDE TAB [Concomitant]
     Indication: TREMOR
     Dosage: 4 MG/DAY
     Route: 065
  3. SERTRALINE HYDROCHLORIDE [Suspect]
     Indication: OBSESSIVE-COMPULSIVE DISORDER
     Dosage: 100 MG/DAY
     Route: 065
  4. VALPROATE SODIUM [Concomitant]
     Indication: PRODUCT USED FOR UNKNOWN INDICATION
     Dosage: 1500 MG/DAY
     Route: 065
  5. QUETIAPINE [Suspect]
     Indication: PSYCHOTIC DISORDER
     Dosage: 800 MG/DAY
     Route: 065
  6. LOPERAMIDE CHLORHIDRATE [Concomitant]
     Indication: PRODUCT USED FOR UNKNOWN INDICATION
     Dosage: 82 MG/DAY
     Route: 065
  7. QUETIAPINE [Suspect]
     Dosage: 400 MG/ DAY
     Route: 065
  8. ZIPRASIDONE HCL [Concomitant]
     Indication: PRODUCT USED FOR UNKNOWN INDICATION
     Dosage: 160 MG/DAY
     Route: 065
  9. CLONAZEPAM [Concomitant]
     Indication: PRODUCT USED FOR UNKNOWN INDICATION
     Dosage: 6 MG/DAY
     Route: 065

REACTIONS (1)
  - PLEUROTHOTONUS [None]
